FAERS Safety Report 4627968-2 (Version None)
Quarter: 2005Q2

REPORT INFORMATION
  Report Type: 
  Country: None (occurrence: None)
  Receive Date: 20050404
  Receipt Date: 20050404
  Transmission Date: 20051028
  Serious: No
  Sender: FDA-Public Use
  Company Number: None

PATIENT
  Age: 56 Year
  Sex: Female
  Weight: 45.3597 kg

DRUGS (1)
  1. REPLENS VAGINAL MOISTURIZER LIL DRUG STORE PRODUCTS [Suspect]
     Indication: VAGINAL LACERATION
     Dosage: AS NECESSARY
     Dates: start: 20050310, end: 20050310

REACTIONS (5)
  - DISCOMFORT [None]
  - DYSURIA [None]
  - HAEMORRHAGE [None]
  - LACERATION [None]
  - PHARMACEUTICAL PRODUCT COMPLAINT [None]
